FAERS Safety Report 7920829-2 (Version None)
Quarter: 2011Q4

REPORT INFORMATION
  Report Type: 
  Country: None (occurrence: None)
  Receive Date: 20111117
  Receipt Date: 20110726
  Transmission Date: 20120403
  Serious: No
  Sender: FDA-Public Use
  Company Number: US-GLAXOSMITHKLINE-A0938453A

PATIENT
  Age: 61 Year
  Sex: Male

DRUGS (1)
  1. VOTRIENT [Suspect]
     Indication: RENAL CANCER
     Dosage: 800MG PER DAY
     Route: 048
     Dates: start: 20110719

REACTIONS (6)
  - FATIGUE [None]
  - SINUSITIS [None]
  - NAUSEA [None]
  - THYROID DISORDER [None]
  - NASOPHARYNGITIS [None]
  - COUGH [None]
